FAERS Safety Report 6542976-2 (Version None)
Quarter: 2010Q1

REPORT INFORMATION
  Report Type: 
  Country: None (occurrence: None)
  Receive Date: 20100120
  Receipt Date: 20100114
  Transmission Date: 20100710
  Serious: Yes (Death)
  Sender: FDA-Public Use
  Company Number: US-CELGENEUS-163-21880-09120726

PATIENT
  Sex: Male

DRUGS (2)
  1. REVLIMID [Suspect]
     Indication: MULTIPLE MYELOMA
     Route: 048
     Dates: start: 20090601
  2. REVLIMID [Suspect]
     Dosage: 25-10 MG
     Route: 048
     Dates: start: 20060801, end: 20090101

REACTIONS (3)
  - HYPERCALCAEMIA [None]
  - MULTIPLE MYELOMA [None]
  - PNEUMONIA [None]
